FAERS Safety Report 5446420-8 (Version None)
Quarter: 2007Q3

REPORT INFORMATION
  Report Type: 
  Country: None (occurrence: None)
  Receive Date: 20070907
  Receipt Date: 20070903
  Transmission Date: 20080115
  Serious: Yes (Other)
  Sender: FDA-Public Use
  Company Number: FR-MERCK-0704FRA00042

PATIENT
  Age: 49 Year
  Sex: Male

DRUGS (4)
  1. VYTORIN [Suspect]
     Indication: HYPERCHOLESTEROLAEMIA
     Route: 048
     Dates: start: 20070201, end: 20070401
  2. ESOMEPRAZOLE MAGNESIUM [Concomitant]
     Route: 048
     Dates: start: 20070201
  3. INDAPAMIDE AND PERINDOPRIL ERBUMINE [Concomitant]
     Indication: HYPERTENSION
     Route: 048
     Dates: start: 20000101
  4. PREDNISONE [Concomitant]
     Indication: TEMPORAL ARTERITIS
     Route: 048
     Dates: start: 20070201

REACTIONS (2)
  - ACOUSTIC NEUROMA [None]
  - BLOOD CREATINE PHOSPHOKINASE INCREASED [None]
